FAERS Safety Report 6716108-1 (Version None)
Quarter: 2010Q2

REPORT INFORMATION
  Report Type: 
  Country: None (occurrence: None)
  Receive Date: 20100507
  Receipt Date: 20100427
  Transmission Date: 20101027
  Serious: Yes (Hospitalization, Other)
  Sender: FDA-Public Use
  Company Number: US-SANOFI-AVENTIS-2010SA025336

PATIENT
  Age: 82 Year
  Sex: Female
  Weight: 60.32 kg

DRUGS (6)
  1. PLAVIX [Suspect]
     Route: 048
     Dates: start: 20080601, end: 20091121
  2. PLAVIX [Suspect]
     Route: 048
     Dates: start: 20091201
  3. GLIPIZIDE [Concomitant]
  4. LISINOPRIL [Concomitant]
     Route: 048
  5. CYMBALTA [Concomitant]
     Dates: start: 20091201
  6. ASPIRIN [Concomitant]
     Route: 048
     Dates: start: 20080601

REACTIONS (8)
  - ARTHROPATHY [None]
  - CONTUSION [None]
  - DECREASED APPETITE [None]
  - DYSPNOEA [None]
  - PALPITATIONS [None]
  - PELVIC FRACTURE [None]
  - POST PROCEDURAL COMPLICATION [None]
  - WEIGHT DECREASED [None]
